FAERS Safety Report 13576380 (Version 2)
Quarter: 2017Q2

REPORT INFORMATION
  Report Type: Spontaneous
  Country: US (occurrence: US)
  Receive Date: 20170524
  Receipt Date: 20170630
  Transmission Date: 20170830
  Serious: Yes (Hospitalization, Other)
  Sender: FDA-Public Use
  Company Number: US-SA-2017SA094227

PATIENT
  Age: 11 Year
  Sex: Female
  Weight: 36.7 kg

DRUGS (4)
  1. ONFI [Concomitant]
     Active Substance: CLOBAZAM
     Indication: SEIZURE
     Dosage: 3ML DAILY DOSE:2.5 MILLIGRAM(S)/MILLILITRE
     Route: 065
     Dates: start: 2016
  2. LUMIZYME [Suspect]
     Active Substance: ALGLUCOSIDASE ALFA
     Indication: GLYCOGEN STORAGE DISEASE TYPE II
     Route: 041
     Dates: start: 20160525
  3. PHENOBARBITAL. [Concomitant]
     Active Substance: PHENOBARBITAL
     Indication: SEIZURE
     Dosage: 7.5 MG DOSE:20 MILLIGRAM(S)/MILLILITRE
     Route: 065
     Dates: start: 2016
  4. KEPPRA [Concomitant]
     Active Substance: LEVETIRACETAM
     Indication: SEIZURE
     Dosage: 11.67 ML DOSE:100 MILLIGRAM(S)/MILLILITRE
     Route: 065

REACTIONS (3)
  - Seizure [Recovered/Resolved]
  - Tachycardia [Recovered/Resolved]
  - Device related infection [Recovered/Resolved]

NARRATIVE: CASE EVENT DATE: 20170421
